FAERS Safety Report 19140092 (Version 1)
Quarter: 2021Q2

REPORT INFORMATION
  Report Type: Spontaneous
  Country: PR (occurrence: PR)
  Receive Date: 20210415
  Receipt Date: 20210415
  Transmission Date: 20210717
  Serious: Yes (Other)
  Sender: FDA-Public Use
  Company Number: PR-AMGEN-PRISP2021052256

PATIENT
  Age: 73 Year
  Sex: Female

DRUGS (6)
  1. ACETAMINOPHEN. [Concomitant]
     Active Substance: ACETAMINOPHEN
     Indication: ABDOMINAL PAIN
  2. CYCLOPHOSPHAMIDE. [Concomitant]
     Active Substance: CYCLOPHOSPHAMIDE
     Dosage: 50 MILLIGRAM
  3. PROLIA [Suspect]
     Active Substance: DENOSUMAB
     Indication: OSTEOPOROSIS
     Dosage: UNK
     Route: 065
  4. PREDNISONE. [Concomitant]
     Active Substance: PREDNISONE
     Dosage: 60 MILLIGRAM, QD
  5. ACETAMINOPHEN. [Concomitant]
     Active Substance: ACETAMINOPHEN
     Indication: OSTEOARTHRITIS
  6. METHYLPREDNISOLONE. [Concomitant]
     Active Substance: METHYLPREDNISOLONE
     Dosage: 60 MILLIGRAM

REACTIONS (14)
  - Gastrointestinal necrosis [Unknown]
  - Hepatomegaly [Unknown]
  - Nodal osteoarthritis [Unknown]
  - Blood lactic acid increased [Unknown]
  - Aneurysm [Unknown]
  - Intestinal haemorrhage [Unknown]
  - Hypotension [Recovered/Resolved]
  - C-reactive protein increased [Unknown]
  - Splenomegaly [Unknown]
  - Diarrhoea [Recovered/Resolved]
  - Septic shock [Unknown]
  - Pseudomonas infection [Unknown]
  - Polyarteritis nodosa [Unknown]
  - Tenderness [Unknown]
